FAERS Safety Report 6341164-2 (Version None)
Quarter: 2009Q3

REPORT INFORMATION
  Report Type: 
  Country: None (occurrence: None)
  Receive Date: 20090904
  Receipt Date: 20090302
  Transmission Date: 20100115
  Serious: No
  Sender: FDA-Public Use
  Company Number: A0771148A

PATIENT
  Age: 54 Year
  Sex: Female

DRUGS (8)
  1. REQUIP [Suspect]
     Indication: RESTLESS LEGS SYNDROME
     Dosage: .5MG AT NIGHT
     Route: 048
     Dates: start: 20081220
  2. LISINOPRIL [Concomitant]
  3. PLENDIL [Concomitant]
  4. METFORMIN HCL [Concomitant]
  5. BYETTA [Concomitant]
  6. OMEPRAZOLE [Concomitant]
  7. ZOCOR [Concomitant]
  8. CYMBALTA [Concomitant]

REACTIONS (2)
  - COMPULSIVE SHOPPING [None]
  - HYPERGLYCAEMIA [None]
